FAERS Safety Report 23405260 (Version 1)
Quarter: 2024Q1

REPORT INFORMATION
  Report Type: Report from Study
  Country: GB (occurrence: GB)
  Receive Date: 20240116
  Receipt Date: 20240116
  Transmission Date: 20240410
  Serious: Yes (Other)
  Sender: FDA-Public Use
  Company Number: GB-002147023-NVSC2023GB024192

PATIENT
  Sex: Male

DRUGS (1)
  1. COSENTYX [Suspect]
     Active Substance: SECUKINUMAB
     Indication: Psoriatic arthropathy
     Dosage: 150 MG, QMO
     Route: 065
     Dates: start: 20230106

REACTIONS (8)
  - Lower respiratory tract infection [Unknown]
  - Arthralgia [Recovering/Resolving]
  - Pain in extremity [Recovering/Resolving]
  - Cough [Unknown]
  - Oral mucosal blistering [Recovering/Resolving]
  - Urinary tract infection [Recovering/Resolving]
  - Blister rupture [Recovered/Resolved]
  - Oral blood blister [Recovered/Resolved]
